FAERS Safety Report 13180755 (Version 1)
Quarter: 2017Q1

REPORT INFORMATION
  Report Type: Spontaneous
  Country: US (occurrence: US)
  Receive Date: 20170202
  Receipt Date: 20170202
  Transmission Date: 20170428
  Serious: No
  Sender: FDA-Public Use
  Company Number: US-SMITH AND NEPHEW, INC-2016SMT00698

PATIENT
  Sex: Male
  Weight: 97.96 kg

DRUGS (6)
  1. OXYCODONE [Concomitant]
     Active Substance: OXYCODONE
     Dosage: 0.5 TABLETS, 1X/DAY
  2. TEA [Concomitant]
     Active Substance: TEA LEAF
  3. NOVOLOG [Concomitant]
     Active Substance: INSULIN ASPART
     Dosage: UNK, 2X/DAY
  4. REGRANEX [Suspect]
     Active Substance: BECAPLERMIN
     Indication: WOUND
     Dosage: UNK, 1X/DAY
     Route: 061
     Dates: start: 201606, end: 201607
  5. LEVEMIR [Concomitant]
     Active Substance: INSULIN DETEMIR
     Dosage: UNK, 3X/DAY OR MORE DEPENDING ON BLOOD SUGAR
  6. OXYCODONE [Concomitant]
     Active Substance: OXYCODONE
     Dosage: 1 TABLETS, 1X/DAY

REACTIONS (4)
  - Application site pain [Recovered/Resolved]
  - Drug ineffective [Recovering/Resolving]
  - Impaired healing [Recovering/Resolving]
  - Pruritus [Recovered/Resolved]

NARRATIVE: CASE EVENT DATE: 2016
